FAERS Safety Report 11832968 (Version 2)
Quarter: 2015Q4

REPORT INFORMATION
  Report Type: Report from Study
  Country: AR (occurrence: AR)
  Receive Date: 20151214
  Receipt Date: 20151229
  Transmission Date: 20160305
  Serious: Yes (Hospitalization, Other)
  Sender: FDA-Public Use
  Company Number: AR-INCYTE CORPORATION-2015IN006444

PATIENT
  Age: 72 Year
  Sex: Female

DRUGS (4)
  1. JAKAFI [Suspect]
     Active Substance: RUXOLITINIB
     Dosage: ONE DOSE OF 15 MG IN THE MORNING AND ONE OF 5 MG AT NIGHT
     Route: 065
     Dates: start: 20151007
  2. JAKAFI [Suspect]
     Active Substance: RUXOLITINIB
     Dosage: 15 MG, BID
     Route: 065
  3. JAKAFI [Suspect]
     Active Substance: RUXOLITINIB
     Dosage: ONE DOSE OF 15 MG IN THE MORNING AND ONE OF 5 MG AT NIGHT
     Route: 065
     Dates: start: 20151125
  4. JAKAFI [Suspect]
     Active Substance: RUXOLITINIB
     Indication: MYELOFIBROSIS
     Dosage: 20 MG, QD
     Route: 065
     Dates: start: 20150505

REACTIONS (2)
  - Pneumonia [Recovered/Resolved]
  - Anaemia [Recovering/Resolving]

NARRATIVE: CASE EVENT DATE: 20151010
